FAERS Safety Report 9967973 (Version 1)
Quarter: 2014Q1

REPORT INFORMATION
  Report Type: Report from Study
  Country: US (occurrence: US)
  Receive Date: 20140306
  Receipt Date: 20140306
  Transmission Date: 20141002
  Serious: No
  Sender: FDA-Public Use
  Company Number: US-ABBVIE-13P-163-1144896-00

PATIENT
  Age: 57 Year
  Sex: Female

DRUGS (6)
  1. HUMIRA [Suspect]
     Indication: RHEUMATOID ARTHRITIS
     Dates: start: 20130822
  2. CONCERTA [Concomitant]
     Indication: DEPRESSION
     Dosage: 36 MG DAILY
  3. KLONOPIN [Concomitant]
     Indication: ANXIETY
     Dosage: 0.5 MG AS NEEDED NO MORE THAN FOUR A DAY
  4. NEURONTIN [Concomitant]
     Indication: NEURALGIA
  5. PLAQUENIL [Concomitant]
     Indication: RHEUMATOID ARTHRITIS
     Dosage: 400 MG DAILY
  6. VICODIN [Concomitant]
     Indication: PAIN
     Dosage: 10/325 MG AS NEEDED

REACTIONS (7)
  - Dizziness [Not Recovered/Not Resolved]
  - Asthenia [Not Recovered/Not Resolved]
  - Nausea [Not Recovered/Not Resolved]
  - Injection site pain [Not Recovered/Not Resolved]
  - Incorrect dose administered [Not Recovered/Not Resolved]
  - Injection site extravasation [Not Recovered/Not Resolved]
  - Wrong technique in drug usage process [Not Recovered/Not Resolved]
